FAERS Safety Report 6045767-4 (Version None)
Quarter: 2009Q1

REPORT INFORMATION
  Report Type: 
  Country: None (occurrence: None)
  Receive Date: 20090121
  Receipt Date: 20081207
  Transmission Date: 20090719
  Serious: Yes (Other)
  Sender: FDA-Public Use
  Company Number: FR-PFIZER INC-2008090845

PATIENT

DRUGS (3)
  1. CHAMPIX [Suspect]
  2. PLAVIX [Concomitant]
  3. BETA BLOCKING AGENTS [Concomitant]

REACTIONS (3)
  - DEPRESSION [None]
  - MORBID THOUGHTS [None]
  - SUICIDAL IDEATION [None]
